FAERS Safety Report 12629587 (Version 1)
Quarter: 2016Q3

REPORT INFORMATION
  Report Type: Spontaneous
  Country: US (occurrence: US)
  Receive Date: 20160808
  Receipt Date: 20160808
  Transmission Date: 20161109
  Serious: Yes (Other)
  Sender: FDA-Public Use
  Company Number: US-GLAXOSMITHKLINE-US2016111673

PATIENT
  Age: 54 Year
  Sex: Male

DRUGS (1)
  1. EXCEDRIN [Suspect]
     Active Substance: ACETAMINOPHEN\ASPIRIN\CAFFEINE
     Indication: PAIN
     Dosage: MOST OF THE TIME 2 -3 IN FIRST

REACTIONS (8)
  - Intentional product misuse [Unknown]
  - Abdominal discomfort [Unknown]
  - Nausea [Unknown]
  - Wrong technique in product usage process [Unknown]
  - Drug ineffective [Unknown]
  - Suicidal ideation [Unknown]
  - Intentional overdose [Unknown]
  - Head discomfort [Not Recovered/Not Resolved]
